FAERS Safety Report 6778924-X (Version None)
Quarter: 2010Q2

REPORT INFORMATION
  Report Type: 
  Country: None (occurrence: None)
  Receive Date: 20100618
  Receipt Date: 20100610
  Transmission Date: 20101027
  Serious: Yes (Other)
  Sender: FDA-Public Use
  Company Number: US-JNJFOC-20100604134

PATIENT
  Sex: Male
  Weight: 61.69 kg

DRUGS (1)
  1. LEVAQUIN [Suspect]
     Indication: LOCALISED INFECTION
     Route: 048

REACTIONS (5)
  - LIGAMENT RUPTURE [None]
  - MUSCLE RUPTURE [None]
  - NAUSEA [None]
  - TENDERNESS [None]
  - TENDONITIS [None]
